FAERS Safety Report 16715804 (Version 1)
Quarter: 2019Q3

REPORT INFORMATION
  Report Type: Spontaneous
  Country: PL (occurrence: PL)
  Receive Date: 20190819
  Receipt Date: 20190819
  Transmission Date: 20191005
  Serious: Yes (Life-Threatening)
  Sender: FDA-Public Use
  Company Number: PL-PFIZER INC-2019353593

PATIENT
  Age: 15 Year
  Sex: Male
  Weight: 44 kg

DRUGS (6)
  1. VFEND [Suspect]
     Active Substance: VORICONAZOLE
     Indication: FUNGAL INFECTION
     Dosage: 270 MG, 2X/DAY
     Route: 042
     Dates: start: 20160924, end: 20160928
  2. VANCOCIN [Concomitant]
     Active Substance: VANCOMYCIN HYDROCHLORIDE
  3. SANDIMMUNE [Concomitant]
     Active Substance: CYCLOSPORINE
  4. SYNTARPEN [Concomitant]
     Active Substance: CLOXACILLIN SODIUM
  5. SOLU-MEDROL [Concomitant]
     Active Substance: METHYLPREDNISOLONE SODIUM SUCCINATE
  6. CYMEVENE [GANCICLOVIR] [Concomitant]
     Active Substance: GANCICLOVIR

REACTIONS (6)
  - Eye movement disorder [Unknown]
  - Unresponsive to stimuli [Unknown]
  - Posterior reversible encephalopathy syndrome [Unknown]
  - Confusional state [Unknown]
  - Hypertensive encephalopathy [Unknown]
  - Nystagmus [Unknown]

NARRATIVE: CASE EVENT DATE: 20160928
